FAERS Safety Report 13967004 (Version 1)
Quarter: 2017Q3

REPORT INFORMATION
  Report Type: Spontaneous
  Country: US (occurrence: None)
  Receive Date: 20170912
  Receipt Date: 20170912
  Transmission Date: 20171128
  Serious: No
  Sender: FDA-Public Use
  Company Number: None

PATIENT
  Age: 59 Year
  Sex: Male
  Weight: 114.67 kg

DRUGS (2)
  1. EMPAGLIFLOZIN [Suspect]
     Active Substance: EMPAGLIFLOZIN
     Indication: CORONARY ARTERY DISEASE
     Route: 048
     Dates: start: 20161230, end: 20170127
  2. EMPAGLIFLOZIN [Suspect]
     Active Substance: EMPAGLIFLOZIN
     Indication: DIABETES MELLITUS
     Route: 048
     Dates: start: 20161230, end: 20170127

REACTIONS (6)
  - Arthralgia [None]
  - Pollakiuria [None]
  - Nocturia [None]
  - Dehydration [None]
  - Musculoskeletal pain [None]
  - Skin disorder [None]

NARRATIVE: CASE EVENT DATE: 20170103
